FAERS Safety Report 15603864 (Version 1)
Quarter: 2018Q4

REPORT INFORMATION
  Report Type: Spontaneous
  Country: GB (occurrence: GB)
  Receive Date: 20181109
  Receipt Date: 20181109
  Transmission Date: 20190205
  Serious: Yes (Other)
  Sender: FDA-Public Use
  Company Number: GB-ALLERGAN-1852511US

PATIENT
  Age: 15 Year
  Sex: Female

DRUGS (2)
  1. FLUOXETINE HCL UNK [Suspect]
     Active Substance: FLUOXETINE HYDROCHLORIDE
     Indication: DEPRESSION
     Dosage: 20 MG, A DAY
     Route: 065
  2. LANREOTIDE [Concomitant]
     Active Substance: LANREOTIDE
     Indication: HYPERINSULINAEMIC HYPOGLYCAEMIA
     Dosage: 30 MG, ONCE MONTHLY
     Route: 058

REACTIONS (3)
  - Disease recurrence [Recovered/Resolved]
  - Hypoglycaemia [Recovered/Resolved]
  - Off label use [Unknown]
